FAERS Safety Report 11315380 (Version 1)
Quarter: 2015Q3

REPORT INFORMATION
  Report Type: Report from Study
  Country: US (occurrence: US)
  Receive Date: 20150727
  Receipt Date: 20150727
  Transmission Date: 20151125
  Serious: Yes (Hospitalization)
  Sender: FDA-Public Use
  Company Number: US-ABBVIE-15K-163-1431301-00

PATIENT
  Age: 64 Year
  Sex: Female
  Weight: 129.39 kg

DRUGS (1)
  1. HUMIRA [Suspect]
     Active Substance: ADALIMUMAB
     Indication: UVEITIS
     Route: 065
     Dates: start: 201407, end: 20150524

REACTIONS (10)
  - Nerve compression [Not Recovered/Not Resolved]
  - Pain [Recovering/Resolving]
  - Neck pain [Recovering/Resolving]
  - Off label use [Recovered/Resolved]
  - Device failure [Recovered/Resolved]
  - Pain in extremity [Recovering/Resolving]
  - Back pain [Recovering/Resolving]
  - Intervertebral disc degeneration [Recovering/Resolving]
  - Headache [Recovering/Resolving]
  - Musculoskeletal pain [Recovering/Resolving]

NARRATIVE: CASE EVENT DATE: 201407
